FAERS Safety Report 6191911-8 (Version None)
Quarter: 2009Q2

REPORT INFORMATION
  Report Type: 
  Country: None (occurrence: None)
  Receive Date: 20090515
  Receipt Date: 20090504
  Transmission Date: 20091009
  Serious: Yes (Other)
  Sender: FDA-Public Use
  Company Number: IE-JNJFOC-20090501088

PATIENT
  Age: 66 Year
  Sex: Male

DRUGS (4)
  1. INFLIXIMAB [Suspect]
     Indication: COLITIS ULCERATIVE
     Dosage: 0, 2 AND 6 WEEK SCHEDULE; RECEIVED TOTAL OF 4 INFUSIONS
     Route: 042
  2. HYDROCORTISONE [Concomitant]
     Route: 042
  3. MESALAZINE [Concomitant]
  4. THIOGUANINE [Concomitant]

REACTIONS (2)
  - ALVEOLITIS [None]
  - RIGHT VENTRICULAR HYPERTROPHY [None]
